FAERS Safety Report 14116123 (Version 2)
Quarter: 2018Q2

REPORT INFORMATION
  Report Type: Spontaneous
  Country: US (occurrence: US)
  Receive Date: 20171023
  Receipt Date: 20180424
  Transmission Date: 20180711
  Serious: Yes (Other)
  Sender: FDA-Public Use
  Company Number: US-NAPPMUNDI-USA-2017-0139566

PATIENT
  Sex: Male

DRUGS (1)
  1. OXYCONTIN [Suspect]
     Active Substance: OXYCODONE HYDROCHLORIDE
     Indication: JAW FRACTURE
     Dosage: UNK
     Route: 048

REACTIONS (5)
  - Drug withdrawal syndrome [Unknown]
  - Hyperhidrosis [Unknown]
  - Drug dependence [Recovering/Resolving]
  - Malaise [Unknown]
  - Pain [Unknown]
